FAERS Safety Report 19002823 (Version 1)
Quarter: 2021Q1

REPORT INFORMATION
  Report Type: Spontaneous
  Country: HR (occurrence: HR)
  Receive Date: 20210312
  Receipt Date: 20210312
  Transmission Date: 20210420
  Serious: Yes (Life-Threatening, Hospitalization, Other)
  Sender: FDA-Public Use
  Company Number: HR-LUPIN PHARMACEUTICALS INC.-2021-03167

PATIENT
  Age: 70 Year
  Sex: Male

DRUGS (2)
  1. SEVELAMER CARBONATE. [Suspect]
     Active Substance: SEVELAMER CARBONATE
     Indication: PRODUCT USED FOR UNKNOWN INDICATION
     Dosage: INGESTED 100 PILLS FOR SUICIDE ATTEMPT
     Route: 048
  2. SULPIRIDE [Concomitant]
     Active Substance: SULPIRIDE
     Indication: DEPRESSION
     Dosage: UNK
     Route: 065

REACTIONS (12)
  - Nausea [Recovering/Resolving]
  - Toxicity to various agents [Unknown]
  - Oesophageal perforation [Recovering/Resolving]
  - Suicide attempt [Unknown]
  - Pyrexia [Recovering/Resolving]
  - Hypotension [Recovering/Resolving]
  - Abdominal pain [Recovering/Resolving]
  - Pneumomediastinum [Recovering/Resolving]
  - Anaemia [Recovering/Resolving]
  - Intentional overdose [Unknown]
  - Tachycardia [Recovering/Resolving]
  - Pulmonary congestion [Recovering/Resolving]
